FAERS Safety Report 22096290 (Version 1)
Quarter: 2023Q1

REPORT INFORMATION
  Report Type: Spontaneous
  Country: US (occurrence: None)
  Receive Date: 20230315
  Receipt Date: 20230315
  Transmission Date: 20230418
  Serious: No
  Sender: FDA-Public Use
  Company Number: US-ARIS GLOBAL-AXS202301-000083

PATIENT
  Sex: Female
  Weight: 48.53 kg

DRUGS (2)
  1. AUVELITY [Suspect]
     Active Substance: BUPROPION HYDROCHLORIDE\DEXTROMETHORPHAN HYDROBROMIDE
     Indication: Depression
     Dosage: ONCE IN THE MORNING, AND ONCE AT NIGHT.
     Route: 048
     Dates: start: 20230113
  2. BUPROPION [Concomitant]
     Active Substance: BUPROPION
     Indication: Product used for unknown indication

REACTIONS (3)
  - Asthenia [Unknown]
  - Depressed mood [Unknown]
  - Drug ineffective [Unknown]
